FAERS Safety Report 25077765 (Version 1)
Quarter: 2025Q1

REPORT INFORMATION
  Report Type: Report from Study
  Country: JP (occurrence: JP)
  Receive Date: 20250314
  Receipt Date: 20250314
  Transmission Date: 20250409
  Serious: Yes (Other)
  Sender: ALEXION PHARMACEUTICALS
  Company Number: JP-ASTRAZENECA-230015116_011820_P_1

PATIENT
  Age: 14 Year
  Weight: 51 kg

DRUGS (1)
  1. KOSELUGO [Suspect]
     Active Substance: SELUMETINIB
     Indication: Neurofibromatosis
     Dosage: 35 MILLIGRAM, BID

REACTIONS (2)
  - Neurofibromatosis [Unknown]
  - Dermatitis acneiform [Recovering/Resolving]
